FAERS Safety Report 4505357-9 (Version None)
Quarter: 2004Q4

REPORT INFORMATION
  Report Type: 
  Country: None (occurrence: None)
  Receive Date: 20041118
  Receipt Date: 20041118
  Transmission Date: 20050328
  Serious: No
  Sender: FDA-Public Use
  Company Number: None

PATIENT
  Age: 76 Year
  Sex: Male
  Weight: 60 kg

DRUGS (2)
  1. VANCOMYCIN [Suspect]
     Indication: STAPHYLOCOCCAL INFECTION
     Dosage: 1.3 GM IV Q 24 H
     Route: 042
     Dates: start: 20041021, end: 20041025
  2. VANCOMYCIN [Suspect]
     Dosage: 1.4 GM IV Q 24 H
     Route: 042
     Dates: start: 20041024, end: 20041025

REACTIONS (1)
  - PYREXIA [None]
